FAERS Safety Report 17271099 (Version 2)
Quarter: 2020Q1

REPORT INFORMATION
  Report Type: Spontaneous
  Country: DE (occurrence: DE)
  Receive Date: 20200115
  Receipt Date: 20200227
  Transmission Date: 20200409
  Serious: Yes (Other)
  Sender: FDA-Public Use
  Company Number: DE-TEVA-800971GER

PATIENT
  Age: 5 Year
  Sex: Female

DRUGS (8)
  1. CYCLOPHOSPHAMIDE. [Suspect]
     Active Substance: CYCLOPHOSPHAMIDE
     Indication: SICKLE CELL DISEASE
     Dosage: 14.5 MG/KG DAILY; 2 X 14.5 MG/KG/DAY (DAYS -3 TO -2) OF THE HSCT
     Route: 065
  2. TACROLIMUS. [Suspect]
     Active Substance: TACROLIMUS
     Indication: PROPHYLAXIS AGAINST GRAFT VERSUS HOST DISEASE
     Dosage: (PLASMA TROUGH LEVELS: 5-15 NG/ML) FROM DAY +5 UNTIL DAY +100 OF THE HSCT WITH CONSECUTIVE TAPERING)
     Route: 065
  3. TREOSULFAN [Suspect]
     Active Substance: TREOSULFAN
     Indication: SICKLE CELL DISEASE
     Dosage: 3 X 14 G/M 2 /DAY (DAYS -7 TO -5) OF THE HSCT
     Route: 065
  4. CYCLOPHOSPHAMIDE. [Suspect]
     Active Substance: CYCLOPHOSPHAMIDE
     Indication: PROPHYLAXIS AGAINST GRAFT VERSUS HOST DISEASE
     Dosage: 50 MG/KG/DAY ON DAYS +3 AND +4 OF THE HSCT
     Route: 065
  5. MYCOPHENOLATE MOFETIL. [Suspect]
     Active Substance: MYCOPHENOLATE MOFETIL
     Indication: PROPHYLAXIS AGAINST GRAFT VERSUS HOST DISEASE
     Dosage: 45 MG/KG DAILY; 3 X 15MG/KG/DAY (DAYS +5 TO +35) OF THE HSCT
     Route: 048
  6. ALEMTUZUMAB [Suspect]
     Active Substance: ALEMTUZUMAB
     Indication: SICKLE CELL DISEASE
     Dosage: .2 MG/KG DAILY; 2 X 0.2 MG/KG/DAY (DAYS -9 TO -8) OF THE HSCT
     Route: 065
  7. THIOTEPA. [Suspect]
     Active Substance: THIOTEPA
     Indication: SICKLE CELL DISEASE
     Dosage: 10 MG/KG DAILY; 2 X 5 MG/KG ON DAY -4 OF THE HSCT
     Route: 065
  8. FLUDARABINE [Suspect]
     Active Substance: FLUDARABINE PHOSPHATE
     Indication: SICKLE CELL DISEASE
     Dosage: 30 MG/M2 DAILY; 5 X 30 MG/M 2 /DAY (DAYS -7 TO -3)OF THE HSCT
     Route: 065

REACTIONS (2)
  - Cytomegalovirus infection [Unknown]
  - Graft versus host disease in skin [Unknown]
